FAERS Safety Report 6005660-X (Version None)
Quarter: 2008Q4

REPORT INFORMATION
  Report Type: 
  Country: None (occurrence: None)
  Receive Date: 20081217
  Receipt Date: 20081208
  Transmission Date: 20090506
  Serious: Yes (Hospitalization)
  Sender: FDA-Public Use
  Company Number: FR-AVENTIS-200816584EU

PATIENT
  Age: 89 Year
  Sex: Male

DRUGS (8)
  1. FLUDEX                             /00340101/ [Suspect]
     Indication: DRUG USE FOR UNKNOWN INDICATION
     Route: 048
  2. NOCTRAN 10 [Suspect]
     Indication: DRUG USE FOR UNKNOWN INDICATION
     Route: 048
     Dates: end: 20081016
  3. SELOKEN COMP [Suspect]
     Indication: DRUG USE FOR UNKNOWN INDICATION
     Route: 048
     Dates: end: 20081027
  4. TAREG [Suspect]
     Indication: DRUG USE FOR UNKNOWN INDICATION
     Route: 048
  5. PROPOFAN                           /00765201/ [Concomitant]
     Dosage: DOSE: 2 TO 6 DF
     Dates: end: 20081016
  6. KARDEGIC                           /00002703/ [Concomitant]
  7. TAHOR [Concomitant]
     Dates: end: 20081016
  8. PLAVIX [Concomitant]

REACTIONS (3)
  - BALANCE DISORDER [None]
  - DRUG INTERACTION [None]
  - FALL [None]
